FAERS Safety Report 4609313-1 (Version None)
Quarter: 2005Q1

REPORT INFORMATION
  Report Type: 
  Country: None (occurrence: None)
  Receive Date: 20050314
  Receipt Date: 20050301
  Transmission Date: 20050727
  Serious: Yes (Life-Threatening, Other)
  Sender: FDA-Public Use
  Company Number: 2004205504FR

PATIENT
  Age: 16 Year
  Sex: Female

DRUGS (7)
  1. SOLU-MEDROL [Suspect]
     Indication: ILL-DEFINED DISORDER
     Dosage: 40 MG (40 MG, 1 IN 1 D), INTRAVENOUS
     Route: 042
     Dates: start: 20010706, end: 20010706
  2. HYDROXYZINE HCL [Suspect]
     Indication: ILL-DEFINED DISORDER
     Dosage: U
  3. AMOXICILLIN [Suspect]
     Indication: ILL-DEFINED DISORDER
     Dosage: 2 GRAM
  4. PROPOFOL [Suspect]
     Indication: ILL-DEFINED DISORDER
     Dosage: 100 MG (100 MG, 1 IN 1 D), INTRAVENOUS
     Route: 042
     Dates: start: 20010706, end: 20010706
  5. ALFENTANIL HYDROCHLORIDE (ALFENTANIL HYDROCHLORIDE) [Suspect]
     Indication: ILL-DEFINED DISORDER
     Dosage: 1.5 MG (1.5 MG, 1 IN 1 D), INTRAVENOUS
     Route: 042
     Dates: start: 20010706, end: 20010706
  6. PROPACETAMOL HYDROCHLORIDE (PROPACETAMOL HYDROCHLORIDE) [Suspect]
     Indication: ILL-DEFINED DISORDER
     Dosage: 2 GRAM (2 GRAM, 1 IN 1 D), INTRAVENOUS
     Route: 042
     Dates: start: 20010706, end: 20010706
  7. MIVACURIUM CHLORIDE (MIVACURIUM CHLORIDE) [Suspect]
     Indication: ILL-DEFINED DISORDER
     Dosage: 4 MG (4 MG), INTRAVENOUS
     Route: 042
     Dates: start: 20010706, end: 20010706

REACTIONS (10)
  - BRADYCARDIA [None]
  - BRAIN OEDEMA [None]
  - BRONCHOSPASM [None]
  - CEREBRAL ISCHAEMIA [None]
  - COMA [None]
  - CYANOSIS [None]
  - NUCLEAR MAGNETIC RESONANCE IMAGING BRAIN ABNORMAL [None]
  - OXYGEN SATURATION DECREASED [None]
  - PROCEDURAL COMPLICATION [None]
  - VENTRICULAR FIBRILLATION [None]
